FAERS Safety Report 4454911-1 (Version None)
Quarter: 2004Q3

REPORT INFORMATION
  Report Type: 
  Country: None (occurrence: None)
  Receive Date: 20040921
  Receipt Date: 20040712
  Transmission Date: 20050211
  Serious: Yes (Other)
  Sender: FDA-Public Use
  Company Number: GB-GLAXOSMITHKLINE-B0339085A

PATIENT
  Age: 69 Year
  Sex: Male

DRUGS (3)
  1. AUGMENTIN [Suspect]
     Route: 065
     Dates: start: 20040504
  2. DICLOFENAC [Concomitant]
     Dosage: 75MG PER DAY
     Route: 048
     Dates: start: 20040408, end: 20040408
  3. FLUCLOXACILLIN [Concomitant]
     Route: 048

REACTIONS (8)
  - ASPARTATE AMINOTRANSFERASE INCREASED [None]
  - BLOOD ALBUMIN DECREASED [None]
  - BLOOD ALKALINE PHOSPHATASE INCREASED [None]
  - BLOOD BILIRUBIN INCREASED [None]
  - BLOOD CHOLESTEROL INCREASED [None]
  - GAMMA-GLUTAMYLTRANSFERASE INCREASED [None]
  - HEPATIC ENZYME INCREASED [None]
  - JAUNDICE CHOLESTATIC [None]
